FAERS Safety Report 6399208-8 (Version None)
Quarter: 2009Q4

REPORT INFORMATION
  Report Type: 
  Country: None (occurrence: None)
  Receive Date: 20091008
  Receipt Date: 20090930
  Transmission Date: 20100525
  Serious: Yes (Other)
  Sender: FDA-Public Use
  Company Number: A-US2009-27667

PATIENT
  Age: 40 Year
  Sex: Male

DRUGS (1)
  1. VENTAVIS [Suspect]
     Indication: THROMBOANGIITIS OBLITERANS
     Dosage: INTRAVENOUS
     Route: 042

REACTIONS (1)
  - ARTERIOSPASM CORONARY [None]
